FAERS Safety Report 5005760-7 (Version None)
Quarter: 2006Q2

REPORT INFORMATION
  Report Type: 
  Country: None (occurrence: None)
  Receive Date: 20060518
  Receipt Date: 20010927
  Transmission Date: 20061013
  Serious: Yes (Hospitalization, Disabling)
  Sender: FDA-Public Use
  Company Number: US-BRISTOL-MYERS SQUIBB COMPANY-11014289

PATIENT
  Age: 45 Year
  Sex: Male
  Weight: 73 kg

DRUGS (23)
  1. PRAVACHOL [Suspect]
     Dates: start: 19980724, end: 20030213
  2. GLUCOPHAGE [Suspect]
     Indication: DIABETES MELLITUS
     Route: 048
     Dates: start: 19980317, end: 20050509
  3. GLUCOVANCE [Suspect]
     Indication: DIABETES MELLITUS
     Route: 048
     Dates: start: 20011010
  4. PROCHLORPERAZINE [Suspect]
     Route: 048
  5. ACTOS [Concomitant]
     Indication: DIABETES MELLITUS
     Route: 048
  6. AMITRIPTYLINE HCL [Concomitant]
     Route: 048
  7. CEPHALEXIN [Concomitant]
     Route: 048
  8. ERY-TAB [Concomitant]
     Route: 048
  9. GLUCOTROL [Concomitant]
     Route: 048
     Dates: end: 19980301
  10. HYDROCODONE [Concomitant]
     Route: 048
  11. METOCLOPRAMIDE [Concomitant]
     Route: 048
  12. PREVACID [Concomitant]
     Indication: CONSTIPATION
     Route: 048
  13. LIPITOR [Concomitant]
     Indication: BLOOD CHOLESTEROL
     Route: 048
  14. VIOXX [Concomitant]
     Route: 048
  15. CELEBREX [Concomitant]
  16. AMARYL [Concomitant]
     Dates: start: 19980301
  17. FOLIC ACID [Concomitant]
     Dates: start: 19980701
  18. THIAMINE [Concomitant]
     Dates: start: 19980701
  19. ASPIRIN [Concomitant]
     Dates: start: 19980701
  20. LORAZEPAM [Concomitant]
     Dates: start: 20021001
  21. VIAGRA [Concomitant]
     Dates: start: 19980701
  22. DIPHENHYDRAMINE HCL [Concomitant]
     Indication: PRURITUS
  23. OPTIVAR [Concomitant]
     Route: 047
     Dates: start: 20050501

REACTIONS (6)
  - ABDOMINAL PAIN [None]
  - BACK PAIN [None]
  - CONSTIPATION [None]
  - GASTRIC ULCER [None]
  - OEDEMA PERIPHERAL [None]
  - PAIN IN EXTREMITY [None]
